FAERS Safety Report 4860892-9 (Version None)
Quarter: 2005Q4

REPORT INFORMATION
  Report Type: 
  Country: None (occurrence: None)
  Receive Date: 20051216
  Receipt Date: 20050308
  Transmission Date: 20060501
  Serious: Yes (Other)
  Sender: FDA-Public Use
  Company Number: 2005041167

PATIENT
  Age: 40 Year
  Sex: Female

DRUGS (1)
  1. HALCION [Suspect]
     Indication: INSOMNIA
     Dosage: 3.5 MG (0.25 MG), ORAL
     Route: 048
     Dates: start: 20050222

REACTIONS (3)
  - ALCOHOL USE [None]
  - OVERDOSE [None]
  - SUICIDE ATTEMPT [None]
